FAERS Safety Report 8878966 (Version 2)
Quarter: 2012Q4

REPORT INFORMATION
  Report Type: Report from Study
  Country: US (occurrence: US)
  Receive Date: 20121030
  Receipt Date: 20121115
  Transmission Date: 20130627
  Serious: No
  Sender: FDA-Public Use
  Company Number: US-VERTEX PHARMACEUTICAL INC.-2012-023548

PATIENT
  Sex: Male
  Weight: 96 kg

DRUGS (6)
  1. VX-950 (TELAPREVIR) [Suspect]
     Indication: HEPATITIS C
     Dosage: UNK
     Route: 048
  2. PEGASYS [Concomitant]
     Indication: HEPATITIS C
  3. RIBAVIRIN [Concomitant]
     Indication: HEPATITIS C
  4. HYDROCHLOROTH [Concomitant]
  5. OXYCODONE [Concomitant]
  6. CELEXA                             /00582602/ [Concomitant]

REACTIONS (8)
  - Influenza like illness [Unknown]
  - Weight decreased [Unknown]
  - Pyrexia [Unknown]
  - Vision blurred [Unknown]
  - Pain [Unknown]
  - Chills [Unknown]
  - Rash pustular [Recovered/Resolved]
  - Pruritus [Unknown]
